FAERS Safety Report 8440142-7 (Version None)
Quarter: 2012Q2

REPORT INFORMATION
  Report Type: 
  Country: None (occurrence: None)
  Receive Date: 20120615
  Receipt Date: 20120606
  Transmission Date: 20120825
  Serious: Yes (Hospitalization)
  Sender: FDA-Public Use
  Company Number: DE-ACTELION-A-US2007-18808

PATIENT

DRUGS (12)
  1. OXYGEN [Concomitant]
  2. SINTROM [Concomitant]
  3. SILDENAFIL [Concomitant]
  4. ACTONEL [Concomitant]
  5. PREDNISONE TAB [Concomitant]
  6. CITALOPRAM HYDROBROMIDE [Concomitant]
  7. VENTAVIS [Suspect]
     Indication: PULMONARY ARTERIAL HYPERTENSION
     Dosage: UNK, 6 X DAY
     Route: 055
     Dates: start: 20070929
  8. OMEPRAZOLE [Concomitant]
  9. RISEDRONATE SODIUM [Concomitant]
  10. ANTIHYPERTENSIVES [Concomitant]
  11. CALCIUM SANDOZ FORTE D [Concomitant]
  12. TRAZODONE HCL [Concomitant]

REACTIONS (14)
  - DEPRESSION [None]
  - BRONCHITIS [None]
  - DISEASE PROGRESSION [None]
  - OEDEMA [None]
  - PULMONARY ARTERIAL HYPERTENSION [None]
  - RIGHT VENTRICULAR FAILURE [None]
  - DYSPNOEA [None]
  - BLOOD PRESSURE INCREASED [None]
  - OEDEMA PERIPHERAL [None]
  - CYANOSIS [None]
  - ABDOMINAL PAIN UPPER [None]
  - SUFFOCATION FEELING [None]
  - OLIGURIA [None]
  - SWELLING FACE [None]
